FAERS Safety Report 22081442 (Version 4)
Quarter: 2023Q2

REPORT INFORMATION
  Report Type: Report from Study
  Country: US (occurrence: US)
  Receive Date: 20230310
  Receipt Date: 20230614
  Transmission Date: 20230722
  Serious: Yes (Other)
  Sender: FDA-Public Use
  Company Number: US-TAKEDA-2023TUS016781

PATIENT
  Sex: Female

DRUGS (4)
  1. MARIBAVIR [Suspect]
     Active Substance: MARIBAVIR
     Indication: Cytomegalovirus infection
     Dosage: 400 MILLIGRAM, BID
     Route: 048
     Dates: start: 20230220
  2. MARIBAVIR [Suspect]
     Active Substance: MARIBAVIR
     Indication: Post procedural infection
  3. VALCYTE [Suspect]
     Active Substance: VALGANCICLOVIR HYDROCHLORIDE
     Indication: Product used for unknown indication
     Dosage: UNK
     Route: 065
  4. FUROSEMIDE [Concomitant]
     Active Substance: FUROSEMIDE
     Dosage: UNK
     Route: 065

REACTIONS (10)
  - Cytomegalovirus infection reactivation [Recovered/Resolved]
  - Renal cancer [Recovering/Resolving]
  - White blood cell count decreased [Recovering/Resolving]
  - Injury [Recovering/Resolving]
  - Scar [Not Recovered/Not Resolved]
  - Decreased immune responsiveness [Recovering/Resolving]
  - Fluid retention [Not Recovered/Not Resolved]
  - Dysgeusia [Unknown]
  - Product use issue [Unknown]
  - Inappropriate schedule of product administration [Unknown]
